FAERS Safety Report 12890249 (Version 1)
Quarter: 2016Q4

REPORT INFORMATION
  Report Type: Spontaneous
  Country: US (occurrence: US)
  Receive Date: 20161027
  Receipt Date: 20161027
  Transmission Date: 20170207
  Serious: Yes (Other)
  Sender: FDA-Public Use
  Company Number: US-SUCAMPO PHARMACEUTICALS, INC.-SPI201601190

PATIENT

DRUGS (2)
  1. AMITIZA [Suspect]
     Active Substance: LUBIPROSTONE
     Indication: PRODUCT USED FOR UNKNOWN INDICATION
     Dosage: 2 CAPSULES, QD
     Route: 048
     Dates: start: 201610, end: 201610
  2. AMITIZA [Suspect]
     Active Substance: LUBIPROSTONE
     Dosage: 1 CAPSULE, QD
     Route: 048
     Dates: start: 201610, end: 201610

REACTIONS (4)
  - Haemorrhage urinary tract [Recovered/Resolved]
  - Chromaturia [Recovered/Resolved]
  - Rectal haemorrhage [Recovered/Resolved]
  - Blood urine present [Recovered/Resolved]

NARRATIVE: CASE EVENT DATE: 201610
